FAERS Safety Report 11525779 (Version 1)
Quarter: 2015Q3

REPORT INFORMATION
  Report Type: Report from Study
  Country: BR (occurrence: BR)
  Receive Date: 20150918
  Receipt Date: 20150918
  Transmission Date: 20151125
  Serious: Yes (Other)
  Sender: FDA-Public Use
  Company Number: BR-ABBVIE-15K-020-1463995-00

PATIENT
  Age: 57 Year
  Sex: Female

DRUGS (4)
  1. HUMIRA [Suspect]
     Active Substance: ADALIMUMAB
     Indication: RHEUMATOID ARTHRITIS
     Route: 058
     Dates: start: 20110902
  2. OLMETEC [Concomitant]
     Active Substance: OLMESARTAN MEDOXOMIL
     Indication: BLOOD PRESSURE MANAGEMENT
     Route: 048
     Dates: start: 20110101
  3. CLORTALIDONE [Concomitant]
     Indication: DIURETIC THERAPY
     Route: 048
     Dates: start: 20110101
  4. METHOTREXATE [Concomitant]
     Active Substance: METHOTREXATE
     Indication: RHEUMATOID ARTHRITIS
     Route: 048
     Dates: start: 20120101

REACTIONS (4)
  - Tooth extraction [Recovering/Resolving]
  - Dental caries [Unknown]
  - Procedural pain [Recovering/Resolving]
  - Post procedural swelling [Recovering/Resolving]

NARRATIVE: CASE EVENT DATE: 20150902
